FAERS Safety Report 18589621 (Version 2)
Quarter: 2021Q1

REPORT INFORMATION
  Report Type: Report from Study
  Country: None (occurrence: CA)
  Receive Date: 20201208
  Receipt Date: 20210311
  Transmission Date: 20210419
  Serious: Yes (Hospitalization, Other)
  Sender: FDA-Public Use
  Company Number: CA-ABBVIE-20K-028-3631461-00

PATIENT
  Sex: Male

DRUGS (1)
  1. IMBRUVICA [Suspect]
     Active Substance: IBRUTINIB
     Indication: CHRONIC LYMPHOCYTIC LEUKAEMIA
     Route: 048

REACTIONS (7)
  - Basal cell carcinoma [Unknown]
  - Platelet count decreased [Unknown]
  - Diarrhoea [Unknown]
  - Viral infection [Unknown]
  - Palpitations [Unknown]
  - Rash [Recovering/Resolving]
  - White blood cell count increased [Recovering/Resolving]
